FAERS Safety Report 12155655 (Version 1)
Quarter: 2016Q1

REPORT INFORMATION
  Report Type: Spontaneous
  Country: US (occurrence: US)
  Receive Date: 20160307
  Receipt Date: 20160307
  Transmission Date: 20160526
  Serious: Yes (Other)
  Sender: FDA-Public Use
  Company Number: US-ALLERGAN-1637660US

PATIENT
  Sex: Male

DRUGS (1)
  1. BOTOX [Suspect]
     Active Substance: ONABOTULINUMTOXINA
     Indication: POLLAKIURIA
     Dosage: UNK, SINGLE
     Route: 043
     Dates: start: 201502, end: 201502

REACTIONS (4)
  - Urinary retention [Recovering/Resolving]
  - Off label use [Unknown]
  - Bladder discomfort [Not Recovered/Not Resolved]
  - Bladder pain [Not Recovered/Not Resolved]

NARRATIVE: CASE EVENT DATE: 201502
